FAERS Safety Report 9319521 (Version 2)
Quarter: 2014Q2

REPORT INFORMATION
  Report Type: Spontaneous
  Country: US (occurrence: US)
  Receive Date: 20130530
  Receipt Date: 20140530
  Transmission Date: 20141212
  Serious: No
  Sender: FDA-Public Use
  Company Number: US-GLAXOSMITHKLINE-A0994817A

PATIENT
  Age: 64 Year
  Sex: Male

DRUGS (2)
  1. FLOLAN [Suspect]
     Indication: PULMONARY ARTERIAL HYPERTENSION
     Dosage: 25NGKM CONTINUOUS
     Route: 065
     Dates: start: 20110427
  2. LETAIRIS [Suspect]
     Dates: start: 201309

REACTIONS (9)
  - Miliaria [Unknown]
  - Diarrhoea [Unknown]
  - Medical device complication [Unknown]
  - Suture related complication [Unknown]
  - Joint swelling [Not Recovered/Not Resolved]
  - Peripheral swelling [Unknown]
  - Device alarm issue [Unknown]
  - Device occlusion [Unknown]
  - Catheter site erythema [Unknown]
